FAERS Safety Report 10363864 (Version 1)
Quarter: 2014Q3

REPORT INFORMATION
  Report Type: Spontaneous
  Country: US (occurrence: US)
  Receive Date: 20140805
  Receipt Date: 20140805
  Transmission Date: 20150326
  Serious: Yes (Hospitalization, Other)
  Sender: FDA-Public Use
  Company Number: US-PFIZER INC-2014215272

PATIENT
  Age: 57 Year
  Sex: Female
  Weight: 66.21 kg

DRUGS (3)
  1. LIPITOR [Interacting]
     Active Substance: ATORVASTATIN CALCIUM
     Dosage: 80 MG, DAILY
     Dates: start: 201407
  2. LIPITOR [Suspect]
     Active Substance: ATORVASTATIN CALCIUM
     Indication: BLOOD CHOLESTEROL INCREASED
     Dosage: 80 MG, DAILY
     Dates: start: 20140620, end: 201407
  3. EFFIENT [Interacting]
     Active Substance: PRASUGREL HYDROCHLORIDE
     Indication: ANTICOAGULANT THERAPY
     Dosage: UNK
     Dates: start: 201406

REACTIONS (4)
  - Labelled drug-food interaction medication error [Unknown]
  - Intestinal haemorrhage [Unknown]
  - Abdominal pain upper [Unknown]
  - Drug interaction [Unknown]

NARRATIVE: CASE EVENT DATE: 2014
